FAERS Safety Report 9838400 (Version 2)
Quarter: 2014Q1

REPORT INFORMATION
  Report Type: Spontaneous
  Country: JP (occurrence: JP)
  Receive Date: 20140123
  Receipt Date: 20140206
  Transmission Date: 20141002
  Serious: Yes (Other)
  Sender: FDA-Public Use
  Company Number: PHHY2014JP003419

PATIENT
  Age: 63 Year
  Sex: Male

DRUGS (2)
  1. INTERLEUKIN-2 [Suspect]
     Indication: NEOPLASM SKIN
     Dosage: 105 U, PER DAY
  2. DOCETAXEL [Suspect]
     Indication: NEOPLASM SKIN
     Dosage: 25 MG/M2, UNK

REACTIONS (10)
  - Angiosarcoma [Unknown]
  - Lymphadenopathy [Recovering/Resolving]
  - Skin plaque [Recovered/Resolved]
  - Face oedema [Recovered/Resolved]
  - Neoplasm skin [Recovering/Resolving]
  - Proteinuria [Unknown]
  - Thrombocytopenia [Unknown]
  - Ulcer [Unknown]
  - Neutropenia [Unknown]
  - Drug ineffective [Unknown]
